FAERS Safety Report 15483472 (Version 3)
Quarter: 2019Q3

REPORT INFORMATION
  Report Type: Spontaneous
  Country: US (occurrence: US)
  Receive Date: 20181010
  Receipt Date: 20190729
  Transmission Date: 20191004
  Serious: No
  Sender: FDA-Public Use
  Company Number: US-PFIZER INC-2018409274

PATIENT
  Age: 58 Year
  Sex: Male
  Weight: 102.4 kg

DRUGS (8)
  1. LEVOTHYROXINE. [Concomitant]
     Active Substance: LEVOTHYROXINE
     Indication: HYPOTHALAMO-PITUITARY DISORDER
  2. LYRICA [Suspect]
     Active Substance: PREGABALIN
     Indication: NEURALGIA
     Dosage: UNK
     Dates: end: 20180215
  3. LYRICA [Suspect]
     Active Substance: PREGABALIN
     Dosage: 100 MG, 1X/DAY
     Route: 048
  4. DEXAMETHASONE. [Concomitant]
     Active Substance: DEXAMETHASONE
     Indication: HYPOTHALAMO-PITUITARY DISORDER
  5. NUTROPIN [Concomitant]
     Active Substance: SOMATROPIN
     Dosage: 7 ML, 1X/DAY (EVERY NIGHT)
     Dates: start: 2009
  6. DEXAMETHASONE. [Concomitant]
     Active Substance: DEXAMETHASONE
     Indication: CORTISOL ABNORMAL
     Dosage: 0.5 MG, 1X/DAY (EVERY NIGHT)
     Route: 048
     Dates: start: 2016
  7. LEVOTHYROXINE. [Concomitant]
     Active Substance: LEVOTHYROXINE
     Indication: THYROID DISORDER
     Dosage: 150 UG, DAILY
     Route: 048
     Dates: start: 2009
  8. TESTOSTERONE CIPIONATE [Concomitant]
     Active Substance: TESTOSTERONE
     Dosage: 1 ML (EVERY 2 WEEKS)
     Dates: start: 2009

REACTIONS (1)
  - Pain [Not Recovered/Not Resolved]

NARRATIVE: CASE EVENT DATE: 20180215
